FAERS Safety Report 15020352 (Version 1)
Quarter: 2018Q2

REPORT INFORMATION
  Report Type: Spontaneous
  Country: US (occurrence: US)
  Receive Date: 20180618
  Receipt Date: 20180618
  Transmission Date: 20180711
  Serious: Yes (Other)
  Sender: FDA-Public Use
  Company Number: US-AUROBINDO-AUR-APL-2018-031944

PATIENT
  Age: 38 Year
  Sex: Male

DRUGS (1)
  1. PAROXETINE. [Suspect]
     Active Substance: PAROXETINE
     Indication: DEPRESSION
     Dosage: UNK
     Route: 065

REACTIONS (2)
  - Cutaneous lupus erythematosus [Recovered/Resolved]
  - Subacute cutaneous lupus erythematosus [Recovered/Resolved]
